FAERS Safety Report 15131589 (Version 1)
Quarter: 2018Q3

REPORT INFORMATION
  Report Type: Spontaneous
  Country: US (occurrence: US)
  Receive Date: 20180711
  Receipt Date: 20180711
  Transmission Date: 20181010
  Serious: No
  Sender: FDA-Public Use
  Company Number: US-BEH-2018092621

PATIENT
  Sex: Female
  Weight: 138.32 kg

DRUGS (36)
  1. VALTREX [Concomitant]
     Active Substance: VALACYCLOVIR HYDROCHLORIDE
  2. IPRATROPIUM [Concomitant]
     Active Substance: IPRATROPIUM
  3. NEXIUM [Concomitant]
     Active Substance: ESOMEPRAZOLE MAGNESIUM
  4. KENALOG [Concomitant]
     Active Substance: TRIAMCINOLONE ACETONIDE
  5. BUSPIRONE [Concomitant]
     Active Substance: BUSPIRONE HYDROCHLORIDE
  6. VITAMIN B [Concomitant]
     Active Substance: VITAMIN B
  7. VALIUM [Concomitant]
     Active Substance: DIAZEPAM
  8. ZYRTEC [Concomitant]
     Active Substance: CETIRIZINE HYDROCHLORIDE
  9. NIZORAL [Concomitant]
     Active Substance: KETOCONAZOLE
  10. IMITREX [Concomitant]
     Active Substance: SUMATRIPTAN SUCCINATE
  11. ELIQUIS [Concomitant]
     Active Substance: APIXABAN
  12. TOPIRAMATE. [Concomitant]
     Active Substance: TOPIRAMATE
  13. DIMETHYL FUMARATE [Concomitant]
     Active Substance: DIMETHYL FUMARATE
  14. RESTASIS [Concomitant]
     Active Substance: CYCLOSPORINE
  15. VITAMIN D                          /00107901/ [Concomitant]
     Active Substance: ERGOCALCIFEROL
  16. BIOTIN [Concomitant]
     Active Substance: BIOTIN
  17. LIDOCAINE. [Concomitant]
     Active Substance: LIDOCAINE
  18. SINGULAIR [Concomitant]
     Active Substance: MONTELUKAST SODIUM
  19. MIRAPEX [Concomitant]
     Active Substance: PRAMIPEXOLE DIHYDROCHLORIDE
  20. HIZENTRA [Suspect]
     Active Substance: HUMAN IMMUNOGLOBULIN G
     Dosage: UNK
     Route: 058
  21. HIZENTRA [Suspect]
     Active Substance: HUMAN IMMUNOGLOBULIN G
     Dosage: UNK
     Route: 058
  22. OXYGEN. [Concomitant]
     Active Substance: OXYGEN
  23. SYSTANE (HYPROMELLOSE 2910 (4000 MPA.S)) [Concomitant]
     Active Substance: HYPROMELLOSE 2910 (4000 MPA.S)
  24. COMPAZINE                          /00013302/ [Concomitant]
     Active Substance: PROCHLORPERAZINE EDISYLATE
  25. EPINEPHRINE. [Concomitant]
     Active Substance: EPINEPHRINE
  26. ZANAFLEX [Concomitant]
     Active Substance: TIZANIDINE HYDROCHLORIDE
  27. HIZENTRA [Suspect]
     Active Substance: HUMAN IMMUNOGLOBULIN G
     Indication: IMMUNODEFICIENCY COMMON VARIABLE
     Dosage: 14 G, QW
     Route: 058
     Dates: start: 20180404
  28. LOPRESSOR [Concomitant]
     Active Substance: METOPROLOL TARTRATE
  29. PROAIR HFA [Concomitant]
     Active Substance: ALBUTEROL SULFATE
  30. ACETAMINOPHEN. [Concomitant]
     Active Substance: ACETAMINOPHEN
  31. DIPHENHYDRAMINE. [Concomitant]
     Active Substance: DIPHENHYDRAMINE
  32. NASONEX [Concomitant]
     Active Substance: MOMETASONE FUROATE
  33. SYMBICORT [Concomitant]
     Active Substance: BUDESONIDE\FORMOTEROL FUMARATE DIHYDRATE
  34. VYVANSE [Concomitant]
     Active Substance: LISDEXAMFETAMINE DIMESYLATE
  35. PRISTIQ EXTENDED?RELEASE [Concomitant]
     Active Substance: DESVENLAFAXINE SUCCINATE
  36. LINZESS [Concomitant]
     Active Substance: LINACLOTIDE

REACTIONS (4)
  - Back pain [Unknown]
  - Weight increased [Unknown]
  - Tachycardia [Unknown]
  - Hypotension [Unknown]
